FAERS Safety Report 22051819 (Version 3)
Quarter: 2023Q1

REPORT INFORMATION
  Report Type: Report from Study
  Country: US (occurrence: US)
  Receive Date: 20230302
  Receipt Date: 20230330
  Transmission Date: 20230418
  Serious: No
  Sender: FDA-Public Use
  Company Number: US-002147023-NVSC2023US044283

PATIENT
  Sex: Female

DRUGS (9)
  1. FAMOTIDINE [Suspect]
     Active Substance: FAMOTIDINE
     Indication: Psoriatic arthropathy
     Dosage: 10 MG, QD
     Route: 048
  2. FAMOTIDINE [Suspect]
     Active Substance: FAMOTIDINE
     Dosage: 20 MG, QD
     Route: 048
  3. PREDNISONE [Suspect]
     Active Substance: PREDNISONE
     Indication: Psoriatic arthropathy
     Dosage: 5 MG, QD
     Route: 048
  4. METHOTREXATE [Suspect]
     Active Substance: METHOTREXATE
     Indication: Psoriatic arthropathy
     Dosage: UNK
     Route: 065
  5. HYDROCHLOROTHIAZIDE [Suspect]
     Active Substance: HYDROCHLOROTHIAZIDE
     Indication: Psoriatic arthropathy
     Dosage: 25 MG, QD
     Route: 048
  6. LEVOTHYROXINE [Suspect]
     Active Substance: LEVOTHYROXINE
     Indication: Psoriatic arthropathy
     Dosage: 75 UG
     Route: 048
  7. ASPIRIN [Suspect]
     Active Substance: ASPIRIN
     Indication: Psoriatic arthropathy
     Dosage: 81 MG, QD (DELAYED RELEASE)
     Route: 048
  8. VITAMINS [Suspect]
     Active Substance: VITAMINS
     Indication: Psoriatic arthropathy
     Dosage: UNK
     Route: 065
  9. PLAQUENIL [Concomitant]
     Active Substance: HYDROXYCHLOROQUINE SULFATE
     Indication: Product used for unknown indication
     Dosage: UNK
     Route: 065

REACTIONS (16)
  - Skin exfoliation [Unknown]
  - Nail pitting [Unknown]
  - Neuralgia [Unknown]
  - Pain in extremity [Unknown]
  - Grip strength decreased [Unknown]
  - Chest pain [Unknown]
  - Dyspnoea [Unknown]
  - Mucosal haemorrhage [Unknown]
  - Joint swelling [Unknown]
  - Rash [Unknown]
  - Rash pruritic [Unknown]
  - Arthralgia [Unknown]
  - Dizziness [Unknown]
  - Fatigue [Unknown]
  - Drug ineffective [Unknown]
  - Product use in unapproved indication [Unknown]
